FAERS Safety Report 7281387-1 (Version None)
Quarter: 2011Q1

REPORT INFORMATION
  Report Type: 
  Country: None (occurrence: None)
  Receive Date: 20110203
  Receipt Date: 20110203
  Transmission Date: 20110831
  Serious: Yes (Other)
  Sender: FDA-Public Use
  Company Number: None

PATIENT
  Sex: Female
  Weight: 46.7205 kg

DRUGS (1)
  1. BACLOFEN [Suspect]
     Indication: MUSCLE SPASMS
     Dosage: 1 3 QID PO
     Route: 048
     Dates: start: 20110102, end: 20110102

REACTIONS (8)
  - ANGER [None]
  - SOMNOLENCE [None]
  - DYSARTHRIA [None]
  - VOMITING [None]
  - HALLUCINATION [None]
  - MOVEMENT DISORDER [None]
  - HYPOVENTILATION [None]
  - DISORIENTATION [None]
